FAERS Safety Report 23661735 (Version 5)
Quarter: 2024Q3

REPORT INFORMATION
  Report Type: Spontaneous
  Country: US (occurrence: US)
  Receive Date: 20240322
  Receipt Date: 20240916
  Transmission Date: 20241016
  Serious: No
  Sender: GLAXOSMITHKLINE
  Company Number: US-GSKCCFUS-Case-01960199_AE-108936

PATIENT
  Sex: Female

DRUGS (2)
  1. BREO ELLIPTA [Suspect]
     Active Substance: FLUTICASONE FUROATE\VILANTEROL TRIFENATATE
     Indication: Product used for unknown indication
     Dosage: UNK
     Route: 055
  2. BREO ELLIPTA [Suspect]
     Active Substance: FLUTICASONE FUROATE\VILANTEROL TRIFENATATE
     Indication: Product used for unknown indication
     Dosage: 1 PUFF(S), QD, 100/25 MCG

REACTIONS (7)
  - Wheezing [Unknown]
  - Condition aggravated [Unknown]
  - Oxygen saturation decreased [Unknown]
  - Listless [Unknown]
  - Drug ineffective [Unknown]
  - Extra dose administered [Unknown]
  - Product complaint [Unknown]
